FAERS Safety Report 4427161-2 (Version None)
Quarter: 2004Q3

REPORT INFORMATION
  Report Type: 
  Country: None (occurrence: None)
  Receive Date: 20040726
  Receipt Date: 20040504
  Transmission Date: 20050211
  Serious: No
  Sender: FDA-Public Use
  Company Number: USA040465989

PATIENT
  Age: 74 Year
  Sex: Female

DRUGS (2)
  1. FORTEO [Suspect]
     Indication: OSTEOPOROSIS
     Dates: start: 20040422
  2. CATAPRES [Concomitant]

REACTIONS (7)
  - BLOOD PRESSURE INCREASED [None]
  - BUTTOCK PAIN [None]
  - ERUCTATION [None]
  - FLATULENCE [None]
  - HEART RATE INCREASED [None]
  - PAIN [None]
  - STOMACH DISCOMFORT [None]
